FAERS Safety Report 9408522 (Version 1)
Quarter: 2013Q3

REPORT INFORMATION
  Report Type: Spontaneous
  Country: US (occurrence: None)
  Receive Date: 20130716
  Receipt Date: 20130716
  Transmission Date: 20140515
  Serious: Yes (Other)
  Sender: FDA-Public Use
  Company Number: JPI-P-033508

PATIENT
  Age: 56 Year
  Sex: Male
  Weight: 115.67 kg

DRUGS (1)
  1. XYREM [Suspect]
     Indication: CATAPLEXY
     Dosage: (6GM, 2 IN 1 D) ORAL
     Route: 048
     Dates: start: 20021031

REACTIONS (5)
  - Nerve injury [None]
  - Insomnia [None]
  - Cataplexy [None]
  - Fall [None]
  - Muscular weakness [None]
